FAERS Safety Report 9174145 (Version 2)
Quarter: 2013Q1

REPORT INFORMATION
  Report Type: Spontaneous
  Country: US (occurrence: None)
  Receive Date: 20130318
  Receipt Date: 20130322
  Transmission Date: 20140127
  Serious: No
  Sender: FDA-Public Use
  Company Number: None

PATIENT
  Age: 57 Year
  Sex: Male
  Weight: 79.38 kg

DRUGS (4)
  1. KENALOG-40 INJ [Suspect]
     Indication: INTERVERTEBRAL DISC DEGENERATION
     Dosage: 80 MG/2ML EPIDURAL
     Route: 008
  2. KENALOG-40 INJ [Suspect]
     Indication: VERTEBRAL FORAMINAL STENOSIS
     Dosage: 80 MG/2ML EPIDURAL
     Route: 008
  3. NEXIUM [Concomitant]
  4. LORTAB [Concomitant]

REACTIONS (2)
  - Anger [None]
  - Restlessness [None]
